FAERS Safety Report 10170360 (Version 1)
Quarter: 2014Q2

REPORT INFORMATION
  Report Type: Spontaneous
  Country: CA (occurrence: CA)
  Receive Date: 20140513
  Receipt Date: 20140513
  Transmission Date: 20141212
  Serious: Yes (Life-Threatening)
  Sender: FDA-Public Use
  Company Number: PHHY2014CA055581

PATIENT
  Age: 72 Year
  Sex: Male
  Weight: 80 kg

DRUGS (19)
  1. CIPROFLOXACIN SANDOZ [Suspect]
     Dosage: 400 MG, Q12H
     Route: 042
  2. VANCOMYCIN HYDROCHLORIDE [Suspect]
     Dosage: 1000 MG, Q12H
     Route: 042
  3. ACETAMINOPHEN [Concomitant]
  4. AMLODIPINE [Concomitant]
  5. BISOPROLOL [Concomitant]
  6. CLONIDINE [Concomitant]
  7. DOCUSATE SODIUM [Concomitant]
  8. FRAGMIN [Concomitant]
  9. GLYBURIDE [Concomitant]
  10. LORAZEPAM [Concomitant]
  11. METFORMIN [Concomitant]
  12. ONGLYZA [Concomitant]
  13. PERINDOPRIL [Concomitant]
  14. PREGABALIN [Concomitant]
  15. ROSUVASTATIN [Concomitant]
  16. SENNOSIDE [Concomitant]
  17. TERAZOSIN [Concomitant]
  18. WARFARIN [Concomitant]
  19. HYDROMORPHONE [Concomitant]

REACTIONS (1)
  - Neutrophil count decreased [Not Recovered/Not Resolved]
